FAERS Safety Report 8191129-3 (Version None)
Quarter: 2012Q1

REPORT INFORMATION
  Report Type: 
  Country: None (occurrence: None)
  Receive Date: 20120307
  Receipt Date: 20120229
  Transmission Date: 20120608
  Serious: Yes (Other)
  Sender: FDA-Public Use
  Company Number: FR-GLAXOSMITHKLINE-B0784805A

PATIENT
  Sex: Female

DRUGS (3)
  1. REQUIP [Suspect]
     Indication: PARKINSON'S DISEASE
     Dosage: 12MG TWICE PER DAY
     Route: 048
     Dates: start: 20050303, end: 20110915
  2. STALEVO 100 [Concomitant]
     Indication: PARKINSON'S DISEASE
     Route: 048
     Dates: start: 20010212
  3. SINEMET [Concomitant]
     Indication: PARKINSON'S DISEASE
     Dosage: 100MG FIVE TIMES PER DAY
     Route: 048
     Dates: start: 20010212

REACTIONS (4)
  - PSYCHOMOTOR HYPERACTIVITY [None]
  - OBSESSIVE-COMPULSIVE DISORDER [None]
  - PATHOLOGICAL GAMBLING [None]
  - COMPULSIVE SHOPPING [None]
